FAERS Safety Report 8763971 (Version 3)
Quarter: 2013Q2

REPORT INFORMATION
  Report Type: Spontaneous
  Country: HR (occurrence: HR)
  Receive Date: 20120831
  Receipt Date: 20130627
  Transmission Date: 20140414
  Serious: Yes (Hospitalization, Other)
  Sender: FDA-Public Use
  Company Number: HR-JNJFOC-20120812715

PATIENT
  Age: 32 Year
  Sex: Female

DRUGS (18)
  1. RISPOLEPT [Suspect]
     Indication: SCHIZOPHRENIA
     Route: 048
  2. RISPOLEPT [Suspect]
     Indication: SCHIZOPHRENIA
     Route: 048
     Dates: start: 201003
  3. RISPOLEPT [Suspect]
     Indication: SCHIZOPHRENIA
     Route: 048
     Dates: start: 200709, end: 2007
  4. RISPOLEPT [Suspect]
     Indication: SCHIZOPHRENIA
     Route: 048
     Dates: start: 200909, end: 2009
  5. RISPOLEPT [Suspect]
     Indication: PSYCHOTIC DISORDER
     Route: 048
  6. RISPOLEPT [Suspect]
     Indication: PSYCHOTIC DISORDER
     Route: 048
     Dates: start: 200909, end: 2009
  7. RISPOLEPT [Suspect]
     Indication: PSYCHOTIC DISORDER
     Route: 048
     Dates: start: 200709, end: 2007
  8. RISPOLEPT [Suspect]
     Indication: PSYCHOTIC DISORDER
     Route: 048
     Dates: start: 201003
  9. RISPOLEPT CONSTA [Suspect]
     Indication: SCHIZOPHRENIA
     Route: 030
     Dates: start: 200709, end: 2009
  10. RISPOLEPT CONSTA [Suspect]
     Indication: SCHIZOPHRENIA
     Route: 030
     Dates: start: 201003
  11. RISPOLEPT CONSTA [Suspect]
     Indication: PSYCHOTIC DISORDER
     Route: 030
     Dates: start: 201003
  12. RISPOLEPT CONSTA [Suspect]
     Indication: PSYCHOTIC DISORDER
     Route: 030
     Dates: start: 200709, end: 2009
  13. ZOLPIDEM [Suspect]
     Indication: PSYCHOTIC DISORDER
     Dosage: IN THE EVENING
     Route: 065
     Dates: start: 2007
  14. QUETIAPINE [Suspect]
     Indication: SCHIZOPHRENIA
     Route: 065
  15. PROMAZINE [Suspect]
     Indication: SCHIZOPHRENIA
     Dosage: IF REQUIRED
     Route: 065
  16. PROMAZINE [Suspect]
     Indication: SCHIZOPHRENIA
     Dosage: IF REQUIRED
     Route: 065
  17. DIAZEPAM [Suspect]
     Indication: ANXIETY
     Route: 065
  18. DIAZEPAM [Suspect]
     Indication: ANXIETY
     Route: 065

REACTIONS (3)
  - Suicide attempt [Recovered/Resolved]
  - Schizophrenia [Recovered/Resolved]
  - Treatment noncompliance [Recovered/Resolved]
